FAERS Safety Report 9992979 (Version 1)
Quarter: 2014Q1

REPORT INFORMATION
  Report Type: Report from Study
  Country: US (occurrence: US)
  Receive Date: 20140310
  Receipt Date: 20140310
  Transmission Date: 20141002
  Serious: No
  Sender: FDA-Public Use
  Company Number: US-ABBVIE-13P-163-1164813-00

PATIENT
  Age: 40 Year
  Sex: Female

DRUGS (4)
  1. LUPRON DEPOT [Suspect]
     Indication: ENDOMETRIOSIS
     Dates: start: 20131021
  2. LUPRON DEPOT [Suspect]
     Indication: BENIGN OVARIAN TUMOUR
  3. PREDNISONE [Concomitant]
     Indication: CROHN^S DISEASE
  4. PENTASA [Concomitant]
     Indication: CROHN^S DISEASE

REACTIONS (2)
  - Abdominal pain [Not Recovered/Not Resolved]
  - Feeling hot [Not Recovered/Not Resolved]
